FAERS Safety Report 24245630 (Version 3)
Quarter: 2025Q1

REPORT INFORMATION
  Report Type: Spontaneous
  Country: US (occurrence: US)
  Receive Date: 20240824
  Receipt Date: 20250101
  Transmission Date: 20250409
  Serious: No
  Sender: VIIV
  Company Number: US-VIIV HEALTHCARE LIMITED-US2024AMR101263

PATIENT
  Age: 36 Year
  Sex: Male
  Weight: 102 kg

DRUGS (4)
  1. CABENUVA [Suspect]
     Active Substance: CABOTEGRAVIR\RILPIVIRINE
     Indication: HIV infection
     Dosage: UNK UNK, MO 600/900
     Route: 030
     Dates: start: 20240430, end: 20240723
  2. CABENUVA [Suspect]
     Active Substance: CABOTEGRAVIR\RILPIVIRINE
  3. CABENUVA [Suspect]
     Active Substance: CABOTEGRAVIR\RILPIVIRINE
  4. BIKTARVY [Concomitant]
     Active Substance: BICTEGRAVIR SODIUM\EMTRICITABINE\TENOFOVIR ALAFENAMIDE FUMARATE
     Indication: Product used for unknown indication
     Dates: start: 20230411, end: 202404

REACTIONS (3)
  - Viral load increased [Recovered/Resolved]
  - Viral mutation identified [Unknown]
  - Pathogen resistance [Unknown]

NARRATIVE: CASE EVENT DATE: 20240528
